FAERS Safety Report 5442046-0 (Version None)
Quarter: 2007Q3

REPORT INFORMATION
  Report Type: 
  Country: None (occurrence: None)
  Receive Date: 20070904
  Receipt Date: 20070829
  Transmission Date: 20080115
  Serious: Yes (Death)
  Sender: FDA-Public Use
  Company Number: FR-AVENTIS-200712366FR

PATIENT
  Age: 66 Year
  Sex: Male

DRUGS (15)
  1. LASILIX                            /00032601/ [Suspect]
     Route: 048
  2. IRBESARTAN [Suspect]
     Route: 048
     Dates: end: 20070601
  3. IRBESARTAN [Suspect]
     Route: 048
     Dates: start: 20070612, end: 20070628
  4. COLCHICINE [Suspect]
     Route: 048
     Dates: start: 20070612, end: 20070628
  5. ZECLAR [Suspect]
     Route: 048
     Dates: start: 20070612
  6. CHOLESTEROL- AND TRIGLYCERIDE REDUCERS [Concomitant]
  7. HYPERIUM                           /00939801/ [Concomitant]
  8. ATENOLOL [Concomitant]
  9. KARDEGIC                           /00002703/ [Concomitant]
  10. DEDROGYL [Concomitant]
  11. NOVORAPID [Concomitant]
  12. UN-ALFA [Concomitant]
  13. CLAMOXYL                           /00249601/ [Concomitant]
     Dates: start: 20070612
  14. ALLOPURINOL [Concomitant]
  15. GLUCOPHAGE [Concomitant]

REACTIONS (5)
  - BLOOD CREATINE PHOSPHOKINASE INCREASED [None]
  - HEPATITIS [None]
  - PANCYTOPENIA [None]
  - RENAL FAILURE ACUTE [None]
  - SEPTIC SHOCK [None]
